FAERS Safety Report 4470783-3 (Version None)
Quarter: 2004Q4

REPORT INFORMATION
  Report Type: 
  Country: None (occurrence: None)
  Receive Date: 20041007
  Receipt Date: 20041007
  Transmission Date: 20050328
  Serious: Yes (Other)
  Sender: FDA-Public Use
  Company Number: None

PATIENT
  Age: 25 Year
  Weight: 112.0385 kg

DRUGS (1)
  1. VIOXX [Suspect]
     Dosage: 2   1   ORAL
     Route: 048

REACTIONS (1)
  - ABDOMINAL PAIN [None]
